FAERS Safety Report 5538338-7 (Version None)
Quarter: 2007Q4

REPORT INFORMATION
  Report Type: 
  Country: None (occurrence: None)
  Receive Date: 20071205
  Receipt Date: 20071128
  Transmission Date: 20080405
  Serious: Yes (Hospitalization)
  Sender: FDA-Public Use
  Company Number: 2007SP17961

PATIENT
  Age: 52 Year
  Sex: Male
  Weight: 73.0291 kg

DRUGS (5)
  1. PEG-INTRON [Suspect]
     Indication: HEPATITIS C
     Dosage: SC
     Route: 058
     Dates: start: 20061206
  2. RIBAVIRIN [Suspect]
     Indication: HEPATITIS C
     Dosage: PO
     Route: 048
     Dates: start: 20061206
  3. BENADRYL [Concomitant]
  4. IBUPROFEN [Concomitant]
  5. VICODIN [Concomitant]

REACTIONS (3)
  - CARDIOMEGALY [None]
  - PERICARDITIS [None]
  - SINUSITIS [None]
